FAERS Safety Report 6765215-6 (Version None)
Quarter: 2010Q2

REPORT INFORMATION
  Report Type: 
  Country: None (occurrence: None)
  Receive Date: 20100610
  Receipt Date: 20100610
  Transmission Date: 20101027
  Serious: Yes (Other)
  Sender: FDA-Public Use
  Company Number: None

PATIENT
  Age: 4 Year
  Sex: Female
  Weight: 19.6 kg

DRUGS (9)
  1. MEROPENEM [Suspect]
     Indication: INFECTION
     Dates: start: 20100605, end: 20100606
  2. CHLOROTHIAZIDE [Concomitant]
  3. DIGOXIN [Concomitant]
  4. ENALAPRIL MALEATE [Concomitant]
  5. FUROSEMIDE [Concomitant]
  6. NEB-BUDESONIDE [Concomitant]
  7. POTASSIUM CHLORIDE [Concomitant]
  8. SPIRONOLACTONE [Concomitant]
  9. ASPIRIN [Concomitant]

REACTIONS (5)
  - CHILLS [None]
  - INFUSION RELATED REACTION [None]
  - RESPIRATORY RATE INCREASED [None]
  - TACHYCARDIA [None]
  - TREMOR [None]
